FAERS Safety Report 6739053-4 (Version None)
Quarter: 2010Q2

REPORT INFORMATION
  Report Type: 
  Country: None (occurrence: None)
  Receive Date: 20100524
  Receipt Date: 20100524
  Transmission Date: 20101027
  Serious: Yes (Other)
  Sender: FDA-Public Use
  Company Number: None

PATIENT
  Age: 63 Year
  Sex: Female
  Weight: 61.2356 kg

DRUGS (1)
  1. ASACOL HD [Suspect]
     Indication: COLITIS MICROSCOPIC
     Dosage: 2 800MG TABLETS 3 TIMES A DAY PO
     Route: 048
     Dates: start: 20100115, end: 20100329

REACTIONS (3)
  - BLADDER IRRITATION [None]
  - CYSTITIS NONINFECTIVE [None]
  - HAEMATURIA [None]
